FAERS Safety Report 4570186-7 (Version None)
Quarter: 2005Q1

REPORT INFORMATION
  Report Type: 
  Country: None (occurrence: None)
  Receive Date: 20050202
  Receipt Date: 20030814
  Transmission Date: 20050727
  Serious: Yes (Life-Threatening)
  Sender: FDA-Public Use
  Company Number: F01200300842

PATIENT
  Age: 74 Year
  Sex: Female

DRUGS (2)
  1. CLOPIDOGREL BISULFATE [Suspect]
     Indication: MYOCARDIAL INFARCTION
     Dosage: LOADING DOSE OF 300 MG FOLLOWED BY 75 MG DAILY
     Route: 048
     Dates: start: 20030729, end: 20030801
  2. ACETYLSALICYLIC ACID [Concomitant]

REACTIONS (1)
  - CARDIAC TAMPONADE [None]
